FAERS Safety Report 14174815 (Version 1)
Quarter: 2017Q4

REPORT INFORMATION
  Report Type: Spontaneous
  Country: US (occurrence: US)
  Receive Date: 20171109
  Receipt Date: 20171109
  Transmission Date: 20180321
  Serious: No
  Sender: FDA-Public Use
  Company Number: US-ALLERGAN-1729877US

PATIENT
  Sex: Male

DRUGS (5)
  1. MINOCYCLINE [Concomitant]
     Active Substance: MINOCYCLINE\MINOCYCLINE HYDROCHLORIDE
     Indication: BLEPHARITIS
  2. AMIODARONE [Concomitant]
     Active Substance: AMIODARONE
  3. METOPROLOL. [Concomitant]
     Active Substance: METOPROLOL
  4. ALPHAGAN P [Suspect]
     Active Substance: BRIMONIDINE TARTRATE
     Indication: GLAUCOMA
     Dosage: 2 GTT, BID
     Route: 047
     Dates: start: 20170713, end: 201707
  5. PRADAXA [Concomitant]
     Active Substance: DABIGATRAN ETEXILATE MESYLATE

REACTIONS (6)
  - Intraocular pressure increased [Unknown]
  - Vision blurred [Recovered/Resolved]
  - Visual impairment [Recovered/Resolved]
  - Eye discharge [Unknown]
  - Product storage error [Unknown]
  - Chromatopsia [Not Recovered/Not Resolved]

NARRATIVE: CASE EVENT DATE: 201707
